FAERS Safety Report 7178807-X (Version None)
Quarter: 2010Q4

REPORT INFORMATION
  Report Type: 
  Country: None (occurrence: None)
  Receive Date: 20101217
  Receipt Date: 20101217
  Transmission Date: 20110411
  Serious: Yes (Other)
  Sender: FDA-Public Use
  Company Number: None

PATIENT
  Age: 36 Year
  Sex: Male
  Weight: 83.9154 kg

DRUGS (1)
  1. CLARITHROMYCIN [Suspect]
     Indication: PHARYNGITIS
     Dosage: 1 TAB -500MG- BID PO
     Route: 048
     Dates: start: 20101215, end: 20101216

REACTIONS (2)
  - DEAFNESS UNILATERAL [None]
  - HYPOACUSIS [None]
